FAERS Safety Report 21491884 (Version 5)
Quarter: 2022Q4

REPORT INFORMATION
  Report Type: Spontaneous
  Country: US (occurrence: US)
  Receive Date: 20221021
  Receipt Date: 20221216
  Transmission Date: 20230113
  Serious: Yes (Other)
  Sender: FDA-Public Use
  Company Number: US-PFIZER INC-PV202200087024

PATIENT
  Age: 70 Year
  Sex: Female

DRUGS (1)
  1. IBRANCE [Suspect]
     Active Substance: PALBOCICLIB
     Dosage: 125 MG
     Dates: end: 202210

REACTIONS (10)
  - Neutropenia [Unknown]
  - Stomatitis [Recovered/Resolved]
  - Gingival pain [Recovering/Resolving]
  - Constipation [Unknown]
  - Lip pain [Recovered/Resolved]
  - Negative thoughts [Unknown]
  - Amnesia [Unknown]
  - Fatigue [Unknown]
  - Cardiac disorder [Unknown]
  - Product dose omission issue [Unknown]
